FAERS Safety Report 13619640 (Version 1)
Quarter: 2017Q2

REPORT INFORMATION
  Report Type: Spontaneous
  Country: US (occurrence: US)
  Receive Date: 20170606
  Receipt Date: 20170606
  Transmission Date: 20170830
  Serious: Yes (Hospitalization)
  Sender: FDA-Public Use
  Company Number: None

PATIENT
  Age: 70 Year
  Sex: Male

DRUGS (4)
  1. PROSTA-VITE [Concomitant]
  2. VIMPAT [Concomitant]
     Active Substance: LACOSAMIDE
  3. PROMACTA [Concomitant]
     Active Substance: ELTROMBOPAG OLAMINE
  4. ZYDELIG [Suspect]
     Active Substance: IDELALISIB
     Indication: IMMUNE THROMBOCYTOPENIC PURPURA
     Dosage: ?          QUANTITY:G OR. SINCE HOSPITALIZED;?
     Route: 048

REACTIONS (2)
  - Therapy cessation [None]
  - Seizure [None]

NARRATIVE: CASE EVENT DATE: 20170605
